FAERS Safety Report 14350237 (Version 8)
Quarter: 2018Q4

REPORT INFORMATION
  Report Type: Spontaneous
  Country: US (occurrence: US)
  Receive Date: 20180104
  Receipt Date: 20181101
  Transmission Date: 20190204
  Serious: Yes (Other)
  Sender: FDA-Public Use
  Company Number: US-PFIZER INC-2018003444

PATIENT
  Age: 52 Year
  Sex: Female

DRUGS (1)
  1. XELJANZ XR [Suspect]
     Active Substance: TOFACITINIB CITRATE
     Dosage: 11 MG
     Dates: start: 20171122

REACTIONS (7)
  - Gastritis fungal [Not Recovered/Not Resolved]
  - White blood cell count increased [Unknown]
  - Infection parasitic [Not Recovered/Not Resolved]
  - Dermatitis infected [Unknown]
  - Coating in mouth [Unknown]
  - Sinus disorder [Unknown]
  - Pain [Unknown]

NARRATIVE: CASE EVENT DATE: 201803
